FAERS Safety Report 25350172 (Version 2)
Quarter: 2025Q3

REPORT INFORMATION
  Report Type: Spontaneous
  Country: JP (occurrence: JP)
  Receive Date: 20250523
  Receipt Date: 20250810
  Transmission Date: 20251020
  Serious: Yes (Death)
  Sender: ALEXION PHARMACEUTICALS
  Company Number: JP-ASTRAZENECA-250050005_013120_P_1

PATIENT
  Age: 60 Year
  Sex: Male

DRUGS (2)
  1. DURVALUMAB [Suspect]
     Active Substance: DURVALUMAB
     Indication: Hepatocellular carcinoma
     Dosage: 1500 MILLIGRAM, Q4W
     Dates: start: 20250115, end: 20250115
  2. TREMELIMUMAB [Suspect]
     Active Substance: TREMELIMUMAB
     Indication: Hepatocellular carcinoma
     Dates: start: 20250115, end: 20250115

REACTIONS (1)
  - Death [Fatal]
